FAERS Safety Report 8585870-8 (Version None)
Quarter: 2012Q3

REPORT INFORMATION
  Report Type: 
  Country: None (occurrence: None)
  Receive Date: 20120802
  Receipt Date: 20120802
  Transmission Date: 20120928
  Serious: Yes (Death)
  Sender: FDA-Public Use
  Company Number: None

PATIENT
  Age: 29 Year
  Sex: Female
  Weight: 102.0593 kg

DRUGS (1)
  1. CHANTIX [Suspect]
     Indication: SMOKING CESSATION THERAPY
     Dosage: 1MG TWICE DAILY PO
     Route: 048
     Dates: start: 20120314, end: 20120604

REACTIONS (6)
  - HEAD INJURY [None]
  - GUN SHOT WOUND [None]
  - ABNORMAL SLEEP-RELATED EVENT [None]
  - SOMNAMBULISM [None]
  - AMNESIA [None]
  - NIGHTMARE [None]
